FAERS Safety Report 6023597-7 (Version None)
Quarter: 2008Q4

REPORT INFORMATION
  Report Type: 
  Country: None (occurrence: None)
  Receive Date: 20081222
  Receipt Date: 20081014
  Transmission Date: 20090506
  Serious: No
  Sender: FDA-Public Use
  Company Number: SPV1-2008-02094

PATIENT
  Age: 11 Year
  Sex: Male
  Weight: 38.5 kg

DRUGS (2)
  1. VYVANSE [Suspect]
     Indication: ATTENTION DEFICIT/HYPERACTIVITY DISORDER
     Dosage: 30 MG, 1X/DAY:QD, ORAL : HALF 30 MG CAPSULE, 1X/DAY:QD, ORAL
     Route: 048
     Dates: start: 20080902, end: 20080901
  2. VYVANSE [Suspect]
     Indication: ATTENTION DEFICIT/HYPERACTIVITY DISORDER
     Dosage: 30 MG, 1X/DAY:QD, ORAL : HALF 30 MG CAPSULE, 1X/DAY:QD, ORAL
     Route: 048
     Dates: start: 20080901

REACTIONS (5)
  - DRUG EFFECT INCREASED [None]
  - DRUG PRESCRIBING ERROR [None]
  - PRODUCT QUALITY ISSUE [None]
  - SLUGGISHNESS [None]
  - SOCIAL AVOIDANT BEHAVIOUR [None]
